FAERS Safety Report 12777811 (Version 2)
Quarter: 2024Q1

REPORT INFORMATION
  Report Type: Spontaneous
  Country: US (occurrence: US)
  Receive Date: 20160924
  Receipt Date: 20240308
  Transmission Date: 20240410
  Serious: No
  Sender: FDA-Public Use
  Company Number: US-JAZZ-2016-US-010535

PATIENT
  Age: 27 Year
  Sex: Female

DRUGS (3)
  1. XYREM [Suspect]
     Active Substance: SODIUM OXYBATE
     Indication: Product used for unknown indication
     Route: 048
  2. CITALOPRAM [Suspect]
     Active Substance: CITALOPRAM HYDROBROMIDE
     Indication: Product used for unknown indication
  3. AMPHETAMINE [Suspect]
     Active Substance: AMPHETAMINE
     Indication: Product used for unknown indication

REACTIONS (6)
  - Tachycardia [Recovering/Resolving]
  - Conduction disorder [Recovering/Resolving]
  - Adverse drug reaction [Recovering/Resolving]
  - Agitation [Recovering/Resolving]
  - Irritability [Recovering/Resolving]
  - Confusional state [Recovering/Resolving]
